FAERS Safety Report 10091801 (Version 1)
Quarter: 2014Q2

REPORT INFORMATION
  Report Type: Spontaneous
  Country: US (occurrence: US)
  Receive Date: 20140421
  Receipt Date: 20140421
  Transmission Date: 20141212
  Serious: No
  Sender: FDA-Public Use
  Company Number: US-009507513-1404USA010921

PATIENT
  Age: 67 Year
  Sex: Female

DRUGS (9)
  1. PEGINTRON [Suspect]
     Indication: HEPATITIS C
     Dosage: 0.4 MICROGRAM, QW,INJECTION
     Dates: start: 20140306
  2. REBETOL [Suspect]
     Indication: HEPATITIS C
     Dosage: 400 MG, BID
     Route: 048
  3. VITAMINS (UNSPECIFIED) [Concomitant]
  4. CALCIUM (UNSPECIFIED) (+) VITAMIN D (UNSPECIFIED) [Concomitant]
  5. OMEGA-3 MARINE TRIGLYCERIDES (FISH OIL) [Concomitant]
  6. BIOTIN [Concomitant]
  7. ALEVE [Concomitant]
  8. IBUPROFEN [Concomitant]
  9. ASCORBIC ACID (VITAMIN C) [Concomitant]

REACTIONS (2)
  - White blood cell count decreased [Unknown]
  - Injection site pain [Unknown]
